FAERS Safety Report 8198858-6 (Version None)
Quarter: 2012Q1

REPORT INFORMATION
  Report Type: 
  Country: None (occurrence: None)
  Receive Date: 20120309
  Receipt Date: 20120214
  Transmission Date: 20120608
  Serious: No
  Sender: FDA-Public Use
  Company Number: US-AMGEN-USASP2012000941

PATIENT
  Age: 62 Year
  Sex: Female

DRUGS (9)
  1. ARTHROTEC [Concomitant]
     Dosage: UNK
  2. SINGULAIR [Concomitant]
     Dosage: UNK
  3. PROLIA [Suspect]
     Indication: OSTEOPENIA
     Dosage: 60 MG, Q6MO
     Dates: start: 20111219, end: 20111219
  4. VALTREX [Concomitant]
  5. SYMBICORT [Concomitant]
     Dosage: UNK
  6. ZANTAC [Concomitant]
     Dosage: UNK
  7. SKELAXIN [Concomitant]
     Dosage: UNK
  8. VITAMIN TAB [Concomitant]
     Dosage: UNK
  9. CALCIUM + VIT D [Concomitant]
     Dosage: UNK

REACTIONS (4)
  - ARTHRALGIA [None]
  - NASOPHARYNGITIS [None]
  - SCIATICA [None]
  - ALOPECIA [None]
